FAERS Safety Report 4581376-1 (Version None)
Quarter: 2005Q1

REPORT INFORMATION
  Report Type: 
  Country: None (occurrence: None)
  Receive Date: 20050214
  Receipt Date: 20041005
  Transmission Date: 20050727
  Serious: No
  Sender: FDA-Public Use
  Company Number: US-GLAXOSMITHKLINE-A0529034A

PATIENT
  Sex: Male

DRUGS (8)
  1. LAMICTAL [Suspect]
     Indication: DEPRESSION
     Dosage: 50MG TWICE PER DAY
     Route: 048
     Dates: start: 20040701
  2. ALLOPURINOL [Suspect]
     Dosage: 300MG PER DAY
     Route: 065
     Dates: start: 20040701
  3. ZOLOFT [Concomitant]
     Dosage: 200MG PER DAY
     Route: 065
  4. ALPRAZOLAM [Concomitant]
     Route: 065
  5. METOPROLOL [Concomitant]
     Dosage: 25MG TWICE PER DAY
     Route: 065
  6. PLAVIX [Concomitant]
     Dosage: 75MG UNKNOWN
     Route: 065
  7. NIASPAN [Concomitant]
     Dosage: 1000MG UNKNOWN
     Route: 065
  8. ZOCOR [Concomitant]
     Dosage: 300MG UNKNOWN
     Route: 065

REACTIONS (4)
  - BACK PAIN [None]
  - CHEST PAIN [None]
  - NERVOUSNESS [None]
  - WEIGHT INCREASED [None]
